FAERS Safety Report 5186522-7 (Version None)
Quarter: 2006Q4

REPORT INFORMATION
  Report Type: 
  Country: None (occurrence: None)
  Receive Date: 20061213
  Receipt Date: 20061127
  Transmission Date: 20070319
  Serious: Yes (Life-Threatening, Hospitalization)
  Sender: FDA-Public Use
  Company Number: DE-2006-034618

PATIENT
  Age: 55 Year
  Sex: Male

DRUGS (1)
  1. BETAFERON(INTERFERON BETA - 1B) INJECTION, 250UG [Suspect]
     Indication: MULTIPLE SCLEROSIS
     Dosage: 8 MIU, EVERY 2D, SUBCUTANEOUS
     Route: 058
     Dates: start: 20020801, end: 20051101

REACTIONS (14)
  - ACUTE RESPIRATORY DISTRESS SYNDROME [None]
  - ACUTE RESPIRATORY FAILURE [None]
  - HYPOXIC ENCEPHALOPATHY [None]
  - PANCREATIC CARCINOMA [None]
  - PNEUMONIA [None]
  - POST PROCEDURAL COMPLICATION [None]
  - PSEUDOMEMBRANOUS COLITIS [None]
  - PULMONARY TUBERCULOSIS [None]
  - RENAL CELL CARCINOMA STAGE I [None]
  - RENAL FAILURE ACUTE [None]
  - SECONDARY PROGRESSIVE MULTIPLE SCLEROSIS [None]
  - SEPTIC SHOCK [None]
  - TRANSAMINASES INCREASED [None]
  - TUBERCULOSIS GASTROINTESTINAL [None]
